FAERS Safety Report 20001596 (Version 1)
Quarter: 2021Q4

REPORT INFORMATION
  Report Type: Report from Study
  Country: CA (occurrence: CA)
  Receive Date: 20211027
  Receipt Date: 20211027
  Transmission Date: 20220304
  Serious: Yes (Other)
  Sender: FDA-Public Use
  Company Number: CA-NOVARTISPH-NVSC2021CA241700

PATIENT
  Sex: Female

DRUGS (3)
  1. MONTELUKAST [Suspect]
     Active Substance: MONTELUKAST SODIUM
     Indication: Chronic spontaneous urticaria
     Dosage: 10 MG
     Route: 065
  2. ALVESCO [Concomitant]
     Active Substance: CICLESONIDE
     Indication: Chronic spontaneous urticaria
     Dosage: 1 DF, QD
     Route: 055
     Dates: start: 202104
  3. CETIRIZINE [Concomitant]
     Active Substance: CETIRIZINE HYDROCHLORIDE
     Indication: Chronic spontaneous urticaria
     Dosage: 2 DF, BID
     Route: 048
     Dates: start: 2021

REACTIONS (2)
  - Chronic spontaneous urticaria [Unknown]
  - Product use in unapproved indication [Unknown]
